FAERS Safety Report 23091244 (Version 1)
Quarter: 2023Q4

REPORT INFORMATION
  Report Type: Spontaneous
  Country: US (occurrence: US)
  Receive Date: 20231020
  Receipt Date: 20231020
  Transmission Date: 20240110
  Serious: No
  Sender: FDA-Public Use
  Company Number: US-BAYER-2023A145121

PATIENT
  Age: 67 Year
  Sex: Male

DRUGS (2)
  1. NUBEQA [Suspect]
     Active Substance: DAROLUTAMIDE
  2. NUBEQA [Suspect]
     Active Substance: DAROLUTAMIDE
     Dosage: 1 TAB IN THE MORNING AND 1 TAB AT NIGHT

REACTIONS (1)
  - Hepatic enzyme increased [None]
